FAERS Safety Report 7769437 (Version 4)
Quarter: 2012Q4

REPORT INFORMATION
  Report Type: 
  Country: BR (occurrence: BR)
  Receive Date: 20110121
  Receipt Date: 20120921
  Transmission Date: 20130627
  Serious: Yes (Life-Threatening, Other)
  Sender: FDA-Public Use
  Company Number: PHHY2011BR03032

PATIENT
  Age: 76 None
  Sex: Male
  Weight: 80 kg

DRUGS (3)
  1. FORASEQ [Suspect]
     Indication: BRONCHITIS
     Dosage: 4 DF,  2 capsules in the morning and 2 capsules at night
  2. FORASEQ [Suspect]
  3. FORASEQ [Suspect]
     Dosage: twice a daily
     Dates: start: 2006

REACTIONS (5)
  - Dyspnoea [Not Recovered/Not Resolved]
  - Traumatic lung injury [Unknown]
  - Apparent death [Unknown]
  - Fall [Unknown]
  - Oedema peripheral [Not Recovered/Not Resolved]
